FAERS Safety Report 17752001 (Version 2)
Quarter: 2020Q2

REPORT INFORMATION
  Report Type: Report from Study
  Country: US (occurrence: US)
  Receive Date: 20200506
  Receipt Date: 20200518
  Transmission Date: 20200714
  Serious: Yes (Life-Threatening, Hospitalization, Other)
  Sender: FDA-Public Use
  Company Number: US-JNJFOC-20200500469

PATIENT
  Age: 66 Year
  Sex: Male

DRUGS (15)
  1. OLAPARIB. [Suspect]
     Active Substance: OLAPARIB
     Indication: HORMONE-REFRACTORY PROSTATE CANCER
     Route: 048
     Dates: start: 20191219, end: 20200508
  2. CALCIUM CARBONATE. [Concomitant]
     Active Substance: CALCIUM CARBONATE
     Indication: GENERAL PHYSICAL HEALTH DETERIORATION
     Route: 048
     Dates: start: 20191209
  3. FLONASE [Concomitant]
     Active Substance: FLUTICASONE PROPIONATE
     Indication: SEASONAL ALLERGY
     Route: 045
     Dates: start: 20190912
  4. ALLEGRA [Concomitant]
     Active Substance: FEXOFENADINE HYDROCHLORIDE
     Indication: SEASONAL ALLERGY
     Route: 048
     Dates: start: 20180524
  5. IBUPROFEN. [Concomitant]
     Active Substance: IBUPROFEN
     Indication: ROUTINE HEALTH MAINTENANCE
     Route: 048
     Dates: start: 20191212
  6. MULTI VITAMIN                      /08408501/ [Concomitant]
     Active Substance: VITAMINS
     Indication: GENERAL PHYSICAL HEALTH DETERIORATION
     Route: 048
     Dates: start: 20081013
  7. ABIRATERONE ACETATE. [Suspect]
     Active Substance: ABIRATERONE ACETATE
     Route: 048
  8. PSEUDOEPHEDRINE. [Concomitant]
     Active Substance: PSEUDOEPHEDRINE HYDROCHLORIDE
     Indication: SEASONAL ALLERGY
     Dosage: PRN
     Route: 048
     Dates: start: 20190725
  9. CETIRIZINE [Concomitant]
     Active Substance: CETIRIZINE HYDROCHLORIDE
     Indication: SEASONAL ALLERGY
     Route: 048
     Dates: start: 20190725
  10. GLUCOSAMINE [Concomitant]
     Active Substance: GLUCOSAMINE
     Indication: ARTHROPATHY
     Route: 048
     Dates: start: 20191212
  11. MAGNESIUM GLUCONATE [Concomitant]
     Active Substance: MAGNESIUM GLUCONATE
     Indication: GENERAL PHYSICAL HEALTH DETERIORATION
     Route: 048
     Dates: start: 20191219
  12. ERGOCALCIFEROL. [Concomitant]
     Active Substance: ERGOCALCIFEROL
     Indication: GENERAL PHYSICAL HEALTH DETERIORATION
     Route: 048
     Dates: start: 20191209
  13. ABIRATERONE ACETATE. [Suspect]
     Active Substance: ABIRATERONE ACETATE
     Indication: HORMONE-REFRACTORY PROSTATE CANCER
     Route: 048
  14. KRILL OIL                          /01334101/ [Concomitant]
     Indication: GENERAL PHYSICAL HEALTH DETERIORATION
     Route: 048
     Dates: start: 20191212
  15. UBIDECARENONE [Concomitant]
     Active Substance: UBIDECARENONE
     Indication: GENERAL PHYSICAL HEALTH DETERIORATION
     Route: 048
     Dates: start: 20191104

REACTIONS (4)
  - Alanine aminotransferase increased [Recovered/Resolved]
  - Aspartate aminotransferase increased [Recovered/Resolved]
  - Pyrexia [Not Recovered/Not Resolved]
  - Leukocytosis [Recovered/Resolved]

NARRATIVE: CASE EVENT DATE: 20200331
